FAERS Safety Report 15896332 (Version 3)
Quarter: 2020Q1

REPORT INFORMATION
  Report Type: Report from Study
  Country: JP (occurrence: JP)
  Receive Date: 20190131
  Receipt Date: 20200117
  Transmission Date: 20200409
  Serious: Yes (Death, Other)
  Sender: FDA-Public Use
  Company Number: PHJP2019JP000899

PATIENT
  Age: 60 Year
  Sex: Male
  Weight: 72.6 kg

DRUGS (3)
  1. SIGNIFOR LAR [Suspect]
     Active Substance: PASIREOTIDE PAMOATE
     Indication: PITUITARY-DEPENDENT CUSHING^S SYNDROME
     Dosage: 10 MG
     Route: 030
     Dates: start: 20181001
  2. SIGNIFOR LAR [Suspect]
     Active Substance: PASIREOTIDE PAMOATE
     Dosage: 10 MG
     Route: 065
     Dates: start: 20181211
  3. SIGNIFOR LAR [Suspect]
     Active Substance: PASIREOTIDE PAMOATE
     Dosage: 10 MG
     Route: 030
     Dates: start: 20181113

REACTIONS (2)
  - Cardio-respiratory arrest [Fatal]
  - Aortic dissection [Fatal]

NARRATIVE: CASE EVENT DATE: 20181224
